FAERS Safety Report 5828953-5 (Version None)
Quarter: 2008Q3

REPORT INFORMATION
  Report Type: 
  Country: None (occurrence: None)
  Receive Date: 20080731
  Receipt Date: 20080605
  Transmission Date: 20090109
  Serious: No
  Sender: FDA-Public Use
  Company Number: US-BAYER-200812546BCC

PATIENT
  Age: 74 Year
  Sex: Female
  Weight: 61 kg

DRUGS (4)
  1. ALEVE [Suspect]
     Indication: ANALGESIA
     Route: 048
  2. HYZAAR [Concomitant]
  3. CLONIDINE [Concomitant]
  4. GENERIC NAME BLOOD PRESSURE MEDICATION [Concomitant]

REACTIONS (1)
  - PAIN [None]
